FAERS Safety Report 25402600 (Version 1)
Quarter: 2025Q2

REPORT INFORMATION
  Report Type: Spontaneous
  Country: US (occurrence: US)
  Receive Date: 20250605
  Receipt Date: 20250605
  Transmission Date: 20250717
  Serious: No
  Sender: SANDOZ
  Company Number: US-SANDOZ-SDZ2024US072703

PATIENT

DRUGS (1)
  1. ASPIRIN\BUTALBITAL\CAFFEINE [Suspect]
     Active Substance: ASPIRIN\BUTALBITAL\CAFFEINE
     Indication: Product used for unknown indication
     Route: 065

REACTIONS (1)
  - Drug ineffective [Unknown]
